FAERS Safety Report 23175284 (Version 1)
Quarter: 2023Q4

REPORT INFORMATION
  Report Type: Spontaneous
  Country: CN (occurrence: CN)
  Receive Date: 20231113
  Receipt Date: 20231113
  Transmission Date: 20240110
  Serious: Yes (Hospitalization, Other)
  Sender: FDA-Public Use
  Company Number: None

PATIENT
  Age: 34 Year
  Sex: Male
  Weight: 62 kg

DRUGS (10)
  1. IFOSFAMIDE [Suspect]
     Active Substance: IFOSFAMIDE
     Indication: Ewing^s sarcoma
     Dosage: 2.8 G, QD, DILUTED WITH 500 ML OF SODIUM CHLORIDE
     Route: 041
     Dates: start: 20210101, end: 20210103
  2. IFOSFAMIDE [Suspect]
     Active Substance: IFOSFAMIDE
     Indication: Plasma cell myeloma
  3. SODIUM CHLORIDE [Suspect]
     Active Substance: SODIUM CHLORIDE
     Indication: Medication dilution
     Dosage: 500 ML, QD, USED TO DILUTE 2.8 G OF IFOSFAMIDE
     Route: 041
     Dates: start: 20210101, end: 20210103
  4. SODIUM CHLORIDE [Suspect]
     Active Substance: SODIUM CHLORIDE
     Dosage: 10 ML, QD, USED TO DILUTE 0.35 G OF DACARBAZINE
     Route: 041
     Dates: start: 20210101, end: 20210104
  5. DEXTROSE [Suspect]
     Active Substance: DEXTROSE\DEXTROSE MONOHYDRATE
     Indication: Medication dilution
     Dosage: 500 ML, QD, USED TO DILUTE 30 MG OF ADRIAMYCIN
     Route: 041
     Dates: start: 20210101, end: 20210103
  6. DEXTROSE [Suspect]
     Active Substance: DEXTROSE\DEXTROSE MONOHYDRATE
     Dosage: 500 ML, QD, USED TO DILUTE 0.35 G OF DACARBAZINE
     Route: 041
     Dates: start: 20210101, end: 20210104
  7. ADRIAMYCIN [Suspect]
     Active Substance: DOXORUBICIN HYDROCHLORIDE
     Indication: Ewing^s sarcoma
     Dosage: 30 MG, QD, DILUTED WITH 500 ML OF GLUCOSE
     Route: 041
     Dates: start: 20210101, end: 20210103
  8. ADRIAMYCIN [Suspect]
     Active Substance: DOXORUBICIN HYDROCHLORIDE
     Indication: Plasma cell myeloma
  9. DACARBAZINE [Suspect]
     Active Substance: DACARBAZINE
     Indication: Ewing^s sarcoma
     Dosage: 0.35 G, QD, DILUTED WITH 10 ML OF SODIUM CHLORIDE AND 500 ML OF GLUCOSE
     Route: 041
     Dates: start: 20210101, end: 20210104
  10. DACARBAZINE [Suspect]
     Active Substance: DACARBAZINE
     Indication: Plasma cell myeloma

REACTIONS (1)
  - Myelosuppression [Recovering/Resolving]

NARRATIVE: CASE EVENT DATE: 20210111
